FAERS Safety Report 5139772-X (Version None)
Quarter: 2006Q4

REPORT INFORMATION
  Report Type: 
  Country: None (occurrence: None)
  Receive Date: 20061030
  Receipt Date: 20061025
  Transmission Date: 20070319
  Serious: Yes (Hospitalization)
  Sender: FDA-Public Use
  Company Number: DK-SANOFI-SYNTHELABO-A01200609042

PATIENT
  Age: 57 Year
  Sex: Female
  Weight: 66 kg

DRUGS (2)
  1. XELODA [Concomitant]
     Dosage: 1500 MG TWICE DAILY
     Route: 048
     Dates: start: 20060925
  2. ELOXATIN [Suspect]
     Indication: COLON CANCER METASTATIC
     Route: 042
     Dates: start: 20060925, end: 20060925

REACTIONS (2)
  - COORDINATION ABNORMAL [None]
  - PARAPARESIS [None]
